FAERS Safety Report 5590732-4 (Version None)
Quarter: 2008Q1

REPORT INFORMATION
  Report Type: 
  Country: None (occurrence: None)
  Receive Date: 20080110
  Receipt Date: 20080102
  Transmission Date: 20080703
  Serious: Yes (Hospitalization)
  Sender: FDA-Public Use
  Company Number: 2008BI000193

PATIENT
  Sex: Male

DRUGS (1)
  1. AVONEX [Suspect]
     Dosage: IM
     Route: 030
     Dates: start: 19990101, end: 20071227

REACTIONS (2)
  - ABASIA [None]
  - MUSCULAR WEAKNESS [None]
